FAERS Safety Report 16489495 (Version 1)
Quarter: 2019Q2

REPORT INFORMATION
  Report Type: Spontaneous
  Country: IT (occurrence: IT)
  Receive Date: 20190628
  Receipt Date: 20190628
  Transmission Date: 20190711
  Serious: Yes (Hospitalization)
  Sender: FDA-Public Use
  Company Number: IT-SA-2019SA171290

PATIENT
  Age: 80 Year
  Sex: Female

DRUGS (2)
  1. GEMCITABINE [Concomitant]
     Active Substance: GEMCITABINE\GEMCITABINE HYDROCHLORIDE
     Indication: NON-SMALL CELL LUNG CANCER
     Dosage: UNK
     Route: 042
     Dates: start: 201903
  2. VANDETANIB. [Suspect]
     Active Substance: VANDETANIB
     Indication: NON-SMALL CELL LUNG CANCER
     Dosage: 300 MG, QD
     Route: 048
     Dates: start: 201903

REACTIONS (10)
  - C-reactive protein increased [Unknown]
  - Bloch-Sulzberger syndrome [Recovering/Resolving]
  - Drug hypersensitivity [Recovering/Resolving]
  - Drug eruption [Recovering/Resolving]
  - Skin erosion [Recovering/Resolving]
  - Lichenoid keratosis [Recovering/Resolving]
  - Pruritus [Recovering/Resolving]
  - Skin lesion [Recovering/Resolving]
  - Eczema [Recovering/Resolving]
  - Erythema [Recovering/Resolving]

NARRATIVE: CASE EVENT DATE: 200905
